FAERS Safety Report 24793382 (Version 2)
Quarter: 2025Q1

REPORT INFORMATION
  Report Type: Spontaneous
  Country: US (occurrence: US)
  Receive Date: 20241231
  Receipt Date: 20250117
  Transmission Date: 20250409
  Serious: Yes (Hospitalization, Other)
  Sender: SANOFI AVENTIS
  Company Number: US-SA-2024SA384430

PATIENT
  Age: 70 Year
  Sex: Female

DRUGS (2)
  1. DUPIXENT [Suspect]
     Active Substance: DUPILUMAB
     Indication: Dermatitis atopic
     Dosage: 300 MG, QOW
     Route: 058
     Dates: start: 202304, end: 20241203
  2. ORENCIA [Concomitant]
     Active Substance: ABATACEPT
     Indication: Rheumatoid arthritis

REACTIONS (5)
  - Atrioventricular block [Unknown]
  - Blood loss anaemia [Unknown]
  - Myocardial infarction [Unknown]
  - Spinal operation [Unknown]
  - Chest pain [Unknown]

NARRATIVE: CASE EVENT DATE: 20240101
